FAERS Safety Report 12351153 (Version 1)
Quarter: 2016Q2

REPORT INFORMATION
  Report Type: Report from Study
  Country: US (occurrence: US)
  Receive Date: 20160510
  Receipt Date: 20160510
  Transmission Date: 20160815
  Serious: Yes (Hospitalization, Other)
  Sender: FDA-Public Use
  Company Number: US-ABBVIE-13P-163-1085698-00

PATIENT
  Sex: Male

DRUGS (2)
  1. HUMIRA [Suspect]
     Active Substance: ADALIMUMAB
     Route: 063
  2. HUMIRA [Suspect]
     Active Substance: ADALIMUMAB
     Indication: MATERNAL EXPOSURE TIMING UNSPECIFIED
     Route: 064

REACTIONS (10)
  - Neonatal aspiration [Recovered/Resolved]
  - Otitis media [Unknown]
  - Foetal exposure during pregnancy [Unknown]
  - Developmental delay [Not Recovered/Not Resolved]
  - Dyspnoea [Recovered/Resolved]
  - Acoustic stimulation tests abnormal [Not Recovered/Not Resolved]
  - Exposure during breast feeding [Recovered/Resolved]
  - Gross motor delay [Not Recovered/Not Resolved]
  - Walking disability [Not Recovered/Not Resolved]
  - Developmental delay [Recovered/Resolved]

NARRATIVE: CASE EVENT DATE: 201311
